FAERS Safety Report 5075416-3 (Version None)
Quarter: 2006Q3

REPORT INFORMATION
  Report Type: 
  Country: None (occurrence: None)
  Receive Date: 20060809
  Receipt Date: 20060328
  Transmission Date: 20061208
  Serious: Yes (Other)
  Sender: FDA-Public Use
  Company Number: US-SANOFI-SYNTHELABO-A03200601850

PATIENT
  Sex: Female

DRUGS (5)
  1. AMBIEN [Suspect]
     Indication: DRUG USE FOR UNKNOWN INDICATION
     Route: 048
     Dates: start: 20040629, end: 20040702
  2. HYDROCODONE BITARTRATE + ACETAMINOPHEN [Concomitant]
     Dosage: 5/500 MG
     Route: 048
  3. PAXIL CR [Concomitant]
     Dosage: UNK
     Route: 048
  4. ALTACE [Concomitant]
     Dosage: UNK
     Route: 048
     Dates: start: 20060629
  5. ATENOLOL [Concomitant]
     Dosage: UNK
     Route: 048
     Dates: start: 20040629

REACTIONS (7)
  - AMNESIA [None]
  - ARTHRITIS [None]
  - BACK INJURY [None]
  - CONTUSION [None]
  - DRUG EFFECT INCREASED [None]
  - ROAD TRAFFIC ACCIDENT [None]
  - SLEEP WALKING [None]
